APPROVED DRUG PRODUCT: PROMETH VC PLAIN
Active Ingredient: PHENYLEPHRINE HYDROCHLORIDE; PROMETHAZINE HYDROCHLORIDE
Strength: 5MG/5ML;6.25MG/5ML
Dosage Form/Route: SYRUP;ORAL
Application: A088761 | Product #001
Applicant: G AND W LABORATORIES INC
Approved: Nov 8, 1984 | RLD: Yes | RS: No | Type: DISCN